FAERS Safety Report 10723867 (Version 1)
Quarter: 2015Q1

REPORT INFORMATION
  Report Type: Spontaneous
  Country: US (occurrence: None)
  Receive Date: 20150114
  Receipt Date: 20150114
  Transmission Date: 20150721
  Serious: Yes (Other)
  Sender: FDA-Public Use
  Company Number: 201501007

PATIENT
  Age: 38 Year
  Sex: Male

DRUGS (1)
  1. TESTOPEL [Suspect]
     Active Substance: TESTOSTERONE
     Indication: BLOOD TESTOSTERONE DECREASED
     Dosage: PELLETS
     Route: 058
     Dates: start: 201302

REACTIONS (1)
  - Intraocular pressure increased [None]
